FAERS Safety Report 4997221-6 (Version None)
Quarter: 2006Q2

REPORT INFORMATION
  Report Type: 
  Country: None (occurrence: None)
  Receive Date: 20060509
  Receipt Date: 20060426
  Transmission Date: 20061013
  Serious: Yes (Hospitalization)
  Sender: FDA-Public Use
  Company Number: PL-SOLVAY-00206001467

PATIENT
  Age: 67 Year
  Sex: Female
  Weight: 75 kg

DRUGS (4)
  1. PRESTARIUM [Suspect]
     Indication: HYPERTENSION
     Dosage: DAILY DOSE: 4 MILLIGRAM(S)
     Route: 048
     Dates: start: 20051101
  2. VEROSPIRON [Suspect]
     Indication: ILL-DEFINED DISORDER
     Dosage: DAILY DOSE: 50 MILLIGRAM(S)
     Route: 048
     Dates: start: 20051101, end: 20060331
  3. KALIPOZ [Suspect]
     Indication: ILL-DEFINED DISORDER
     Dosage: DAILY DOSE: 2 DOSAGE FORM
     Route: 048
     Dates: start: 20051101, end: 20060331
  4. CONCOR COR [Suspect]
     Indication: ILL-DEFINED DISORDER
     Dosage: DAILY DOSE: 2.5 MILLIGRAM(S)
     Route: 048
     Dates: start: 20051101

REACTIONS (4)
  - ASTHENIA [None]
  - BRADYCARDIA [None]
  - DRUG INTERACTION [None]
  - HYPERKALAEMIA [None]
